FAERS Safety Report 12029506 (Version 1)
Quarter: 2016Q1

REPORT INFORMATION
  Report Type: Spontaneous
  Country: JP (occurrence: JP)
  Receive Date: 20160207
  Receipt Date: 20160207
  Transmission Date: 20160526
  Serious: Yes (Other)
  Sender: FDA-Public Use
  Company Number: JP-TEVA-632434ISR

PATIENT
  Age: 38 Year
  Sex: Female

DRUGS (1)
  1. IRINOTECAN [Suspect]
     Active Substance: IRINOTECAN
     Indication: CERVIX CARCINOMA
     Dosage: 60 MG/M2 ON DAYS 1 AND 8
     Route: 065

REACTIONS (2)
  - Ovarian disorder [Unknown]
  - Toxicity to various agents [Unknown]
